FAERS Safety Report 4850433-4 (Version None)
Quarter: 2005Q4

REPORT INFORMATION
  Report Type: 
  Country: None (occurrence: None)
  Receive Date: 20051125
  Receipt Date: 20041126
  Transmission Date: 20060501
  Serious: Yes (Hospitalization, Other)
  Sender: FDA-Public Use
  Company Number: 2004070426

PATIENT
  Sex: Female

DRUGS (10)
  1. TIKOSYN [Suspect]
     Indication: ATRIAL FIBRILLATION
     Dosage: 500 MCG (250 MCG, 2 IN 1 D), UNKNOWN
     Dates: start: 20011105, end: 20040113
  2. FLECAINIDE ACETATE [Suspect]
     Indication: ATRIAL FIBRILLATION
     Dates: start: 20040101
  3. AMIODARONE HCL [Suspect]
     Indication: ATRIAL FIBRILLATION
  4. GUAIFENESIN (GUAIFENESIN) [Concomitant]
  5. CEFUROXIME AXETIL [Concomitant]
  6. COMBIVENT [Concomitant]
  7. MAGNESIUM OXIDE (MAGNESIUM OXIDE) [Concomitant]
  8. SALMETEROL XINAFOATE (SALMETEROL XINAFOATE [Concomitant]
  9. WARFARIN (WARFARIN) [Concomitant]
  10. CARVEDILOL [Concomitant]

REACTIONS (2)
  - ATRIAL FIBRILLATION [None]
  - DRUG INTOLERANCE [None]
